FAERS Safety Report 13357031 (Version 2)
Quarter: 2017Q1

REPORT INFORMATION
  Report Type: Spontaneous
  Country: DE (occurrence: DE)
  Receive Date: 20170322
  Receipt Date: 20170324
  Transmission Date: 20170429
  Serious: Yes (Other)
  Sender: FDA-Public Use
  Company Number: DE-ROCHE-1909705

PATIENT
  Age: 2 Year
  Sex: Male

DRUGS (1)
  1. ROACTEMRA [Suspect]
     Active Substance: TOCILIZUMAB
     Indication: LYSINURIC PROTEIN INTOLERANCE
     Route: 065

REACTIONS (3)
  - Vomiting [Unknown]
  - Rash [Unknown]
  - Off label use [Unknown]
